FAERS Safety Report 18224713 (Version 1)
Quarter: 2020Q3

REPORT INFORMATION
  Report Type: Spontaneous
  Country: US (occurrence: US)
  Receive Date: 20200902
  Receipt Date: 20200902
  Transmission Date: 20201103
  Serious: No
  Sender: FDA-Public Use
  Company Number: US-009507513-2008USA010786

PATIENT
  Age: 62 Year
  Sex: Female

DRUGS (16)
  1. KEYTRUDA [Suspect]
     Active Substance: PEMBROLIZUMAB
     Indication: METASTASES TO BONE
  2. MESNA. [Concomitant]
     Active Substance: MESNA
     Indication: UTERINE LEIOMYOSARCOMA
     Dosage: 2500 MILLIGRAM/SQ. METER, EVERY 3 WEEKS
  3. KEYTRUDA [Suspect]
     Active Substance: PEMBROLIZUMAB
     Indication: UTERINE LEIOMYOSARCOMA
     Dosage: 200 MG EVERY 21 DAYS
     Route: 042
     Dates: start: 201806
  4. MESNA. [Concomitant]
     Active Substance: MESNA
     Indication: METASTASES TO BONE
  5. DOXORUBICIN [Concomitant]
     Active Substance: DOXORUBICIN
     Indication: METASTASES TO BONE
  6. DOXORUBICIN [Concomitant]
     Active Substance: DOXORUBICIN
     Indication: METASTASES TO LUNG
  7. IFOSFAMIDE. [Concomitant]
     Active Substance: IFOSFAMIDE
     Indication: METASTASES TO BONE
  8. IFOSFAMIDE. [Concomitant]
     Active Substance: IFOSFAMIDE
     Indication: METASTASES TO LUNG
  9. DACARBAZINE. [Concomitant]
     Active Substance: DACARBAZINE
     Indication: METASTASES TO BONE
  10. MESNA. [Concomitant]
     Active Substance: MESNA
     Indication: METASTASES TO LUNG
  11. KEYTRUDA [Suspect]
     Active Substance: PEMBROLIZUMAB
     Indication: METASTASES TO LUNG
  12. DENOSUMAB [Concomitant]
     Active Substance: DENOSUMAB
     Indication: METASTASES TO BONE
     Dosage: 120 MG EVERY 28 DAYS
  13. DACARBAZINE. [Concomitant]
     Active Substance: DACARBAZINE
     Indication: METASTASES TO LUNG
  14. DOXORUBICIN [Concomitant]
     Active Substance: DOXORUBICIN
     Indication: UTERINE LEIOMYOSARCOMA
     Dosage: 15 MILLIGRAM/SQ. METER, EVERY 3 WEEKS
  15. IFOSFAMIDE. [Concomitant]
     Active Substance: IFOSFAMIDE
     Indication: UTERINE LEIOMYOSARCOMA
     Dosage: 2000 MILLIGRAM/SQ. METER, EVERY 3 WEEKS
  16. DACARBAZINE. [Concomitant]
     Active Substance: DACARBAZINE
     Indication: UTERINE LEIOMYOSARCOMA
     Dosage: 250 MILLIGRAM/SQ. METER, EVERY 3 WEEKS

REACTIONS (2)
  - Off label use [Unknown]
  - Drug effective for unapproved indication [Unknown]

NARRATIVE: CASE EVENT DATE: 201806
